FAERS Safety Report 7774119-1 (Version None)
Quarter: 2011Q3

REPORT INFORMATION
  Report Type: 
  Country: None (occurrence: None)
  Receive Date: 20110923
  Receipt Date: 20110922
  Transmission Date: 20111222
  Serious: No
  Sender: FDA-Public Use
  Company Number: US-PFIZER INC-2011225954

PATIENT
  Sex: Female
  Weight: 110.2 kg

DRUGS (4)
  1. ADVIL CONGESTION RELIEF [Suspect]
     Indication: SINUS HEADACHE
  2. ATENOLOL [Concomitant]
     Indication: HYPERTENSION
     Dosage: 100 MG, DAILY
     Route: 048
  3. ADVIL CONGESTION RELIEF [Suspect]
     Indication: HEADACHE
     Dosage: 1 DF, EVERY 4 HRS
     Route: 048
     Dates: start: 20110914, end: 20110918
  4. ADVIL CONGESTION RELIEF [Suspect]
     Indication: SINUS CONGESTION

REACTIONS (1)
  - DRUG INEFFECTIVE [None]
